FAERS Safety Report 7241887-7 (Version None)
Quarter: 2011Q1

REPORT INFORMATION
  Report Type: 
  Country: None (occurrence: None)
  Receive Date: 20110124
  Receipt Date: 20101215
  Transmission Date: 20110831
  Serious: Yes (Other)
  Sender: FDA-Public Use
  Company Number: JP-BRISTOL-MYERS SQUIBB COMPANY-15451479

PATIENT
  Age: 81 Year
  Sex: Male

DRUGS (8)
  1. OLMETEC [Concomitant]
     Dosage: TABS
  2. ATELEC [Concomitant]
     Dosage: TABS
  3. SAXAGLIPTIN [Suspect]
     Indication: TYPE 2 DIABETES MELLITUS
     Dosage: RECEIVED FOR 8WKS; TABS
     Route: 048
     Dates: start: 20101007
  4. PAROTIN [Concomitant]
     Dosage: TABS
  5. OMEPRAL [Concomitant]
     Dosage: TABS
  6. SHAKUYAKU-KANZO-TO [Concomitant]
     Dosage: GRANULE
  7. EPADEL [Concomitant]
  8. SERMION [Concomitant]
     Dosage: TABS

REACTIONS (1)
  - HEPATIC NEOPLASM MALIGNANT [None]
